FAERS Safety Report 13816345 (Version 1)
Quarter: 2017Q3

REPORT INFORMATION
  Report Type: Spontaneous
  Country: US (occurrence: US)
  Receive Date: 20170731
  Receipt Date: 20170731
  Transmission Date: 20171127
  Serious: Yes (Other)
  Sender: FDA-Public Use
  Company Number: US-TARO-2017TAR00397

PATIENT
  Age: 53 Year
  Sex: Male
  Weight: 77.98 kg

DRUGS (2)
  1. PENTASA [Concomitant]
     Active Substance: MESALAMINE
     Dosage: 3 G, UNK
  2. FLUOCINONIDE CREAM USP 0.1% [Suspect]
     Active Substance: FLUOCINONIDE
     Indication: TENDONITIS
     Dosage: UNK, 3X/DAY
     Route: 061
     Dates: start: 20170422, end: 20170506

REACTIONS (18)
  - Hypothalamic pituitary adrenal axis suppression [Recovering/Resolving]
  - Feeling hot [Recovering/Resolving]
  - Thirst [Recovering/Resolving]
  - Muscle tightness [Recovering/Resolving]
  - Tendonitis [Recovering/Resolving]
  - Withdrawal syndrome [Recovering/Resolving]
  - Inappropriate schedule of drug administration [Recovered/Resolved]
  - Anxiety [Recovering/Resolving]
  - Insomnia [Recovering/Resolving]
  - Myalgia [Recovering/Resolving]
  - Emotional disorder [Recovering/Resolving]
  - Sleep disorder [Recovering/Resolving]
  - Depressed mood [Recovering/Resolving]
  - Drug ineffective for unapproved indication [Unknown]
  - Eating disorder [Recovering/Resolving]
  - Skin disorder [Recovering/Resolving]
  - Palpitations [Recovering/Resolving]
  - Memory impairment [None]

NARRATIVE: CASE EVENT DATE: 201704
